FAERS Safety Report 18573492 (Version 2)
Quarter: 2020Q4

REPORT INFORMATION
  Report Type: Spontaneous
  Country: CN (occurrence: CN)
  Receive Date: 20201203
  Receipt Date: 20201208
  Transmission Date: 20210114
  Serious: Yes (Death, Other)
  Sender: FDA-Public Use
  Company Number: CN-ROCHE-2723874

PATIENT
  Age: 60 Year
  Sex: Female

DRUGS (9)
  1. MABTHERA [Suspect]
     Active Substance: RITUXIMAB
     Indication: NON-HODGKIN^S LYMPHOMA
     Route: 065
     Dates: start: 20160705
  2. VINCRISTINE [Concomitant]
     Active Substance: VINCRISTINE
     Indication: NON-HODGKIN^S LYMPHOMA
     Dates: start: 20160705
  3. CYCLOPHOSPHAMIDE. [Concomitant]
     Active Substance: CYCLOPHOSPHAMIDE
     Indication: NON-HODGKIN^S LYMPHOMA
     Dates: start: 20160705
  4. ETOPOSIDE. [Concomitant]
     Active Substance: ETOPOSIDE
     Indication: NON-HODGKIN^S LYMPHOMA
     Dates: start: 20160705
  5. LENALIDOMIDE [Concomitant]
     Active Substance: LENALIDOMIDE
     Indication: NON-HODGKIN^S LYMPHOMA
     Dates: start: 20190428
  6. PREDNISONE. [Concomitant]
     Active Substance: PREDNISONE
     Indication: NON-HODGKIN^S LYMPHOMA
     Dates: start: 20160705
  7. IBRUTINIB [Concomitant]
     Active Substance: IBRUTINIB
     Indication: NON-HODGKIN^S LYMPHOMA
     Dates: start: 20200121
  8. BENDAMUSTINE [Concomitant]
     Active Substance: BENDAMUSTINE
     Indication: NON-HODGKIN^S LYMPHOMA
     Dates: start: 20200405
  9. DOXORUBICIN [Concomitant]
     Active Substance: DOXORUBICIN
     Indication: NON-HODGKIN^S LYMPHOMA
     Dates: start: 20160705

REACTIONS (18)
  - Nausea [Unknown]
  - Tachypnoea [Unknown]
  - Respiratory failure [Fatal]
  - Dyspnoea [Unknown]
  - Platelet count decreased [Unknown]
  - Marasmus [Unknown]
  - Pyrexia [Unknown]
  - Cough [Unknown]
  - Infected neoplasm [Unknown]
  - Neutrophil count decreased [Unknown]
  - Night sweats [Unknown]
  - Haematuria [Recovered/Resolved]
  - Ureteric haemorrhage [Recovered/Resolved]
  - Bladder spasm [Unknown]
  - White blood cell count decreased [Unknown]
  - Renal haemorrhage [Recovered/Resolved]
  - Abdominal distension [Recovering/Resolving]
  - Urine output decreased [Unknown]

NARRATIVE: CASE EVENT DATE: 2019
